FAERS Safety Report 10395330 (Version 1)
Quarter: 2014Q3

REPORT INFORMATION
  Report Type: Spontaneous
  Country: FR (occurrence: FR)
  Receive Date: 20140820
  Receipt Date: 20140820
  Transmission Date: 20150326
  Serious: Yes (Death, Life-Threatening, Other)
  Sender: FDA-Public Use
  Company Number: FR-ROXANE LABORATORIES, INC.-2014-RO-01243RO

PATIENT
  Age: 11 Month
  Sex: Male
  Weight: 8 kg

DRUGS (1)
  1. METHADONE [Suspect]
     Active Substance: METHADONE HYDROCHLORIDE
     Indication: ACCIDENTAL EXPOSURE TO PRODUCT BY CHILD
     Route: 048

REACTIONS (7)
  - Accidental poisoning [None]
  - Respiratory depression [Unknown]
  - Asphyxia [None]
  - Toxicity to various agents [Fatal]
  - Pulmonary oedema [Unknown]
  - Multi-organ disorder [Unknown]
  - Brain oedema [None]
